FAERS Safety Report 5670331-6 (Version None)
Quarter: 2008Q1

REPORT INFORMATION
  Report Type: 
  Country: None (occurrence: None)
  Receive Date: 20080314
  Receipt Date: 20080314
  Transmission Date: 20080703
  Serious: Yes (Death)
  Sender: FDA-Public Use
  Company Number: None

PATIENT
  Age: 93 Year
  Sex: Female
  Weight: 49.8957 kg

DRUGS (2)
  1. ERAXIS [Suspect]
     Indication: SYSTEMIC CANDIDA
     Dosage: 100 MG QD IV
     Route: 042
     Dates: start: 20080115
  2. ERAXIS [Suspect]
     Indication: SYSTEMIC CANDIDA
     Dosage: 100 MG QD IV
     Route: 042
     Dates: start: 20080117

REACTIONS (2)
  - LARGE INTESTINE PERFORATION [None]
  - RESPIRATORY FAILURE [None]
